FAERS Safety Report 19234094 (Version 1)
Quarter: 2021Q2

REPORT INFORMATION
  Report Type: Spontaneous
  Country: AT (occurrence: AT)
  Receive Date: 20210508
  Receipt Date: 20210508
  Transmission Date: 20210717
  Serious: No
  Sender: FDA-Public Use
  Company Number: AT-LUPIN PHARMACEUTICALS INC.-2021-06490

PATIENT
  Age: 16 Year
  Sex: Male

DRUGS (8)
  1. SERTRALINE [Suspect]
     Active Substance: SERTRALINE HYDROCHLORIDE
     Indication: PERSONALITY DISORDER
  2. SERTRALINE [Suspect]
     Active Substance: SERTRALINE HYDROCHLORIDE
     Indication: SUBSTANCE USE DISORDER
  3. CANNABIDIOL [Concomitant]
     Active Substance: CANNABIDIOL
     Indication: DEPRESSION
     Dosage: 50 MILLIGRAM, BID 50 MILLIGRAM IN THE MORNING AND EVENING
     Route: 065
  4. SERTRALINE [Suspect]
     Active Substance: SERTRALINE HYDROCHLORIDE
     Indication: DEPRESSION
     Dosage: 100 MILLIGRAM, QD
     Route: 048
  5. CANNABIDIOL [Concomitant]
     Active Substance: CANNABIDIOL
     Indication: ANXIETY
     Dosage: 300 MILLIGRAM, BID
     Route: 065
  6. CANNABIDIOL [Concomitant]
     Active Substance: CANNABIDIOL
     Indication: PERSONALITY DISORDER
  7. SERTRALINE [Suspect]
     Active Substance: SERTRALINE HYDROCHLORIDE
     Indication: ANXIETY
  8. CANNABIDIOL [Concomitant]
     Active Substance: CANNABIDIOL
     Indication: SUBSTANCE USE DISORDER

REACTIONS (1)
  - Drug ineffective [Unknown]
